FAERS Safety Report 7069569-5 (Version None)
Quarter: 2010Q4

REPORT INFORMATION
  Report Type: 
  Country: None (occurrence: None)
  Receive Date: 20101028
  Receipt Date: 20100322
  Transmission Date: 20110411
  Serious: No
  Sender: FDA-Public Use
  Company Number: US-WYE-H14317110

PATIENT
  Sex: Female
  Weight: 63.56 kg

DRUGS (2)
  1. PROTONIX [Suspect]
     Dates: start: 20070101
  2. VITAMINS [Concomitant]

REACTIONS (3)
  - COLITIS ULCERATIVE [None]
  - SINUSITIS [None]
  - UNEVALUABLE EVENT [None]
